FAERS Safety Report 8209190-6 (Version None)
Quarter: 2012Q1

REPORT INFORMATION
  Report Type: 
  Country: None (occurrence: None)
  Receive Date: 20120314
  Receipt Date: 20120305
  Transmission Date: 20120608
  Serious: Yes (Other)
  Sender: FDA-Public Use
  Company Number: US-BAYER-2012-023546

PATIENT
  Sex: Female

DRUGS (1)
  1. YASMIN [Suspect]
     Dosage: UNK
     Dates: start: 20010101

REACTIONS (7)
  - RENAL INJURY [None]
  - HEPATIC FAILURE [None]
  - PLACENTAL INSUFFICIENCY [None]
  - LIVER INJURY [None]
  - PRE-ECLAMPSIA [None]
  - RENAL FAILURE [None]
  - HELLP SYNDROME [None]
